FAERS Safety Report 6042337-9 (Version None)
Quarter: 2009Q1

REPORT INFORMATION
  Report Type: 
  Country: None (occurrence: None)
  Receive Date: 20090116
  Receipt Date: 20090108
  Transmission Date: 20090719
  Serious: Yes (Hospitalization, Other)
  Sender: FDA-Public Use
  Company Number: US-PFIZER INC-2009153752

PATIENT
  Sex: Female

DRUGS (3)
  1. CHANTIX [Suspect]
  2. CYMBALTA [Suspect]
  3. ANALGESICS [Suspect]

REACTIONS (3)
  - CONVULSION [None]
  - RESPIRATORY ARREST [None]
  - SEROTONIN SYNDROME [None]
